FAERS Safety Report 8154182-9 (Version None)
Quarter: 2012Q1

REPORT INFORMATION
  Report Type: 
  Country: None (occurrence: None)
  Receive Date: 20120221
  Receipt Date: 20120213
  Transmission Date: 20120608
  Serious: Yes (Hospitalization)
  Sender: FDA-Public Use
  Company Number: NO-PURDUE-GBR-2012-0009748

PATIENT
  Sex: Female

DRUGS (10)
  1. IMDUR [Concomitant]
     Dosage: 60 MG, UNK
  2. PANTOPRAZOLE [Concomitant]
     Dosage: 40 MG, BID
  3. DUPHALAC [Concomitant]
     Indication: LAXATIVE SUPPORTIVE CARE
  4. LEVOTHYROXINE SODIUM [Concomitant]
     Dosage: 150 MCG, DAILY
  5. SIMVASTATIN [Concomitant]
     Dosage: 40 MG, DAILY
  6. OXYCONTIN [Suspect]
     Indication: PAIN
     Dosage: 10 MG, BID
     Route: 048
     Dates: start: 20111201, end: 20120125
  7. BUMETANIDE [Concomitant]
     Dosage: 15 ML, BID
     Route: 048
  8. LEVOTHYROXINE SODIUM [Concomitant]
     Dosage: 100 MCG, DAILY
  9. PARACET                            /00020001/ [Concomitant]
     Dosage: 1 G, TID
     Route: 048
  10. PRANOLOL [Concomitant]
     Dosage: 20 UNK, BID

REACTIONS (3)
  - BEDRIDDEN [None]
  - VOMITING [None]
  - NAUSEA [None]
